FAERS Safety Report 20876963 (Version 2)
Quarter: 2022Q3

REPORT INFORMATION
  Report Type: Spontaneous
  Country: US (occurrence: US)
  Receive Date: 20220526
  Receipt Date: 20220802
  Transmission Date: 20221026
  Serious: No
  Sender: FDA-Public Use
  Company Number: US-BRISTOL-MYERS SQUIBB COMPANY-2022-031604

PATIENT
  Age: 58 Year
  Sex: Female

DRUGS (2)
  1. INREBIC [Suspect]
     Active Substance: FEDRATINIB HYDROCHLORIDE
     Indication: Polycythaemia vera
     Dosage: 4 PILLS, EACH 100MG AT ONE TIME
     Route: 048
     Dates: start: 20220409
  2. INREBIC [Suspect]
     Active Substance: FEDRATINIB HYDROCHLORIDE
     Route: 048
     Dates: start: 20190828

REACTIONS (3)
  - Emotional disorder [Not Recovered/Not Resolved]
  - Abdominal discomfort [Unknown]
  - Accidental overdose [Unknown]

NARRATIVE: CASE EVENT DATE: 20220428
